FAERS Safety Report 20467176 (Version 2)
Quarter: 2022Q1

REPORT INFORMATION
  Report Type: Report from Study
  Country: RO (occurrence: RO)
  Receive Date: 20220214
  Receipt Date: 20220215
  Transmission Date: 20220423
  Serious: Yes (Death, Hospitalization, Other)
  Sender: FDA-Public Use
  Company Number: RO-ABBVIE-22K-135-4273674-00

PATIENT
  Age: 70 Year
  Sex: Female

DRUGS (2)
  1. CARBIDOPA\LEVODOPA [Suspect]
     Active Substance: CARBIDOPA\LEVODOPA
     Indication: Parkinson^s disease
     Dosage: DM:16.00 DC:3.60 ED:2.00 NRED:2; DMN:0.00 DCN:0.00 EDN:0.00 NREDN:0
     Route: 050
     Dates: start: 20180625
  2. CARBIDOPA\LEVODOPA [Suspect]
     Active Substance: CARBIDOPA\LEVODOPA

REACTIONS (4)
  - Cardio-respiratory arrest [Fatal]
  - Cerebral atrophy [Unknown]
  - Cerebellar atrophy [Unknown]
  - Epilepsy [Unknown]

NARRATIVE: CASE EVENT DATE: 20220209
